FAERS Safety Report 8431168-8 (Version None)
Quarter: 2012Q2

REPORT INFORMATION
  Report Type: 
  Country: None (occurrence: None)
  Receive Date: 20120612
  Receipt Date: 20120605
  Transmission Date: 20120825
  Serious: Yes (Other)
  Sender: FDA-Public Use
  Company Number: PHHY2010TR37119

PATIENT
  Age: 79 Year
  Sex: Female
  Weight: 46 kg

DRUGS (9)
  1. EXELON [Suspect]
     Indication: DEMENTIA ALZHEIMER'S TYPE
     Dosage: 9.5 MG\24HRS
     Route: 062
     Dates: start: 20100506
  2. DILTIAZEM [Concomitant]
     Indication: CARDIAC FAILURE CHRONIC
  3. EXELON [Suspect]
     Dosage: 4.6 MG\24HRS
     Route: 062
     Dates: start: 20100601
  4. MONOKET [Concomitant]
     Indication: CARDIAC FAILURE CHRONIC
  5. DILTIAZEM [Concomitant]
     Indication: HYPERTENSION
     Dosage: 2 DF, DAILY
  6. MONOKET [Concomitant]
     Indication: HYPERTENSION
     Dosage: 1 DF, DAILY
  7. DOLOREX [Concomitant]
  8. ISORDIL [Concomitant]
     Indication: HYPERTENSION
     Dosage: 1 DF, DAILY
  9. ISORDIL [Concomitant]
     Indication: CARDIAC FAILURE CHRONIC

REACTIONS (3)
  - HYPERTENSION [None]
  - CARDIAC FAILURE CHRONIC [None]
  - DEMENTIA [None]
